FAERS Safety Report 10976002 (Version 2)
Quarter: 2015Q3

REPORT INFORMATION
  Report Type: Spontaneous
  Country: US (occurrence: US)
  Receive Date: 20150401
  Receipt Date: 20150820
  Transmission Date: 20151125
  Serious: Yes (Hospitalization)
  Sender: FDA-Public Use
  Company Number: US-MYLANLABS-2015M1010721

PATIENT
  Age: 25 Year
  Sex: Male

DRUGS (4)
  1. LIOTHYRONINE [Suspect]
     Active Substance: LIOTHYRONINE
     Dosage: 50MICROG FOR 1 DAY
     Route: 048
  2. LIOTHYRONINE [Suspect]
     Active Substance: LIOTHYRONINE
     Dosage: 25MICROG FOR 3 DAYS, THEN INCREASED
     Route: 048
  3. CLENBUTEROL [Suspect]
     Active Substance: CLENBUTEROL
     Route: 048
  4. ANABOLIC STEROIDS [Suspect]
     Active Substance: UNSPECIFIED INGREDIENT
     Route: 048

REACTIONS (3)
  - Myocarditis [Recovering/Resolving]
  - Drug abuse [Unknown]
  - Acute respiratory distress syndrome [Recovering/Resolving]
